FAERS Safety Report 6668822-4 (Version None)
Quarter: 2010Q2

REPORT INFORMATION
  Report Type: 
  Country: None (occurrence: None)
  Receive Date: 20100401
  Receipt Date: 20100323
  Transmission Date: 20101027
  Serious: Yes (Other)
  Sender: FDA-Public Use
  Company Number: WAES 1003USA00121

PATIENT
  Age: 62 Year
  Sex: Female

DRUGS (8)
  1. TAB JANUVIA (SLTAGLIPTIN PHOSPHATE) [Suspect]
     Indication: TYPE 2 DIABETES MELLITUS
     Dosage: 50 MG/DAILY PO
     Route: 048
     Dates: start: 20100107, end: 20100224
  2. PLACEBO (UNSPECIFIED) [Suspect]
     Indication: TYPE 2 DIABETES MELLITUS
     Dosage: PO
     Route: 048
     Dates: start: 20090910, end: 20100106
  3. PLACEBO (UNSPECIFIED) UNK [Suspect]
     Dates: start: 20090827, end: 20090909
  4. CONIEL [Concomitant]
  5. HUAMALOG MIX 25 [Concomitant]
  6. LIVALO [Concomitant]
  7. MAINTATE [Concomitant]
  8. LOSARTAN POTASSIUM AND HYDROCHLOROTHIAZIDE [Concomitant]

REACTIONS (1)
  - BREAST CANCER FEMALE [None]
